FAERS Safety Report 5007430-8 (Version None)
Quarter: 2006Q2

REPORT INFORMATION
  Report Type: 
  Country: None (occurrence: None)
  Receive Date: 20060519
  Receipt Date: 20060519
  Transmission Date: 20061013
  Serious: No
  Sender: FDA-Public Use
  Company Number: None

PATIENT
  Sex: Male
  Weight: 78.4723 kg

DRUGS (6)
  1. VENLAFAXINE HCL EXTENDED-RELEASE [Suspect]
     Indication: DEPRESSION
     Dosage: 75 MG BID PO
     Route: 048
     Dates: start: 20060104, end: 20060118
  2. CLONAZEPAM [Concomitant]
  3. CYCLOBENZAPINE HCL [Concomitant]
  4. HYDROCODONE 5 / ACETAMINOPHEN 500 MG [Concomitant]
  5. TRAMADOL HCL [Concomitant]
  6. VALPROIC ACID [Concomitant]

REACTIONS (3)
  - DIPLOPIA [None]
  - DIZZINESS [None]
  - RASH [None]
